FAERS Safety Report 22304554 (Version 3)
Quarter: 2023Q2

REPORT INFORMATION
  Report Type: Spontaneous
  Country: US (occurrence: US)
  Receive Date: 20230510
  Receipt Date: 20230630
  Transmission Date: 20230722
  Serious: No
  Sender: FDA-Public Use
  Company Number: US-SA-SAC20230508000883

PATIENT
  Age: 18 Year
  Sex: Male

DRUGS (6)
  1. DUPIXENT [Suspect]
     Active Substance: DUPILUMAB
     Indication: Dermatitis atopic
     Dosage: 300 MG, OTHER
     Route: 058
     Dates: start: 20220721
  2. TRIAMCINOLONE [Concomitant]
     Active Substance: TRIAMCINOLONE
     Indication: Dermatitis atopic
     Dosage: UNK
     Route: 061
     Dates: start: 20210806
  3. BETAMETHASONE [Concomitant]
     Active Substance: BETAMETHASONE
     Indication: Dermatitis atopic
     Dosage: 30 G
     Route: 061
     Dates: start: 20220607
  4. PREDNISONE [Concomitant]
     Active Substance: PREDNISONE
     Indication: Dermatitis atopic
     Dosage: 30 G
     Route: 061
     Dates: start: 20210908, end: 20220715
  5. EUCRISA [Concomitant]
     Active Substance: CRISABOROLE
     Indication: Dermatitis atopic
     Dosage: 30 G
     Route: 061
     Dates: start: 20210908, end: 20220615
  6. EPIDERM [BETAMETHASONE DIPROPIONATE;CHLOROCRESOL;CLIOQUINOL;GENTAMICIN [Concomitant]
     Indication: Dermatitis atopic
     Dosage: 60 G
     Route: 061
     Dates: start: 20210908

REACTIONS (3)
  - Injection site pain [Unknown]
  - Injection site erythema [Recovered/Resolved]
  - Injection site swelling [Recovered/Resolved]

NARRATIVE: CASE EVENT DATE: 20230405
